FAERS Safety Report 21238822 (Version 1)
Quarter: 2022Q3

REPORT INFORMATION
  Report Type: Report from Study
  Country: US (occurrence: US)
  Receive Date: 20220822
  Receipt Date: 20220822
  Transmission Date: 20221027
  Serious: Yes (Hospitalization, Other)
  Sender: FDA-Public Use
  Company Number: US-BRISTOL-MYERS SQUIBB COMPANY-2022-089082

PATIENT
  Age: 54 Year
  Sex: Female
  Weight: 90.22 kg

DRUGS (2)
  1. REVLIMID [Suspect]
     Active Substance: LENALIDOMIDE
     Indication: Product used for unknown indication
     Dosage: DAILY AT BEDTIME FOR 21 DAYS
     Route: 048
     Dates: start: 20220721
  2. GABAPENTIN [Concomitant]
     Active Substance: GABAPENTIN
     Indication: Product used for unknown indication
     Route: 065

REACTIONS (5)
  - Peripheral swelling [Unknown]
  - Pain [Unknown]
  - Thrombosis [Unknown]
  - Back pain [Unknown]
  - Compression fracture [Unknown]

NARRATIVE: CASE EVENT DATE: 20220601
